FAERS Safety Report 17467955 (Version 7)
Quarter: 2020Q1

REPORT INFORMATION
  Report Type: Spontaneous
  Country: DE (occurrence: DE)
  Receive Date: 20200227
  Receipt Date: 20200320
  Transmission Date: 20200409
  Serious: Yes (Hospitalization, Other)
  Sender: FDA-Public Use
  Company Number: DE-PFIZER INC-2020086745

PATIENT
  Age: 94 Year
  Sex: Male

DRUGS (4)
  1. METOPROLOL. [Suspect]
     Active Substance: METOPROLOL
     Indication: HYPERTENSION
     Dosage: 47.5 MG, QD
     Route: 065
     Dates: start: 2001, end: 201907
  2. RAMIPRIL. [Suspect]
     Active Substance: RAMIPRIL
     Indication: HYPERTENSION
     Dosage: UNK
     Route: 048
     Dates: start: 2001
  3. DELIX [RAMIPRIL] [Suspect]
     Active Substance: RAMIPRIL
     Indication: HYPERTENSION
     Dosage: 2.5 MG (1 DF IN THE MORNING AND 1 DF OR 2 DF IN THE EVENING DEPENDING ON BLOOD PRESSURE)
     Route: 048
     Dates: start: 2001, end: 20190719
  4. DELIX [RAMIPRIL] [Suspect]
     Active Substance: RAMIPRIL
     Dosage: UNK
     Route: 048
     Dates: start: 2001

REACTIONS (28)
  - Drug ineffective [Unknown]
  - Pulmonary oedema [Recovered/Resolved]
  - Fall [Recovered/Resolved]
  - Peripheral vascular disorder [Recovering/Resolving]
  - Polyneuropathy [Not Recovered/Not Resolved]
  - Oedema peripheral [Recovered/Resolved]
  - Coronary artery disease [Unknown]
  - Arrhythmia [Recovering/Resolving]
  - Vertigo [Unknown]
  - Hypertension [Recovered/Resolved]
  - Cardiac failure [Recovering/Resolving]
  - Myocardial infarction [Unknown]
  - Congestive cardiomyopathy [Unknown]
  - Atrial fibrillation [Recovering/Resolving]
  - PO2 decreased [Unknown]
  - Renal cyst [Unknown]
  - Fatigue [Unknown]
  - Left ventricular dysfunction [Recovering/Resolving]
  - Incontinence [Recovering/Resolving]
  - Retinal detachment [Unknown]
  - Gait disturbance [Not Recovered/Not Resolved]
  - Memory impairment [Recovering/Resolving]
  - Insomnia [Unknown]
  - Gait inability [Not Recovered/Not Resolved]
  - Macular degeneration [Recovering/Resolving]
  - Lumbar vertebral fracture [Unknown]
  - Prostatic disorder [Recovering/Resolving]
  - Ventricular extrasystoles [Unknown]

NARRATIVE: CASE EVENT DATE: 2016
